FAERS Safety Report 7989545-5 (Version None)
Quarter: 2011Q4

REPORT INFORMATION
  Report Type: 
  Country: None (occurrence: None)
  Receive Date: 20111219
  Receipt Date: 20101124
  Transmission Date: 20120403
  Serious: No
  Sender: FDA-Public Use
  Company Number: US-ASTRAZENECA-2010SE56405

PATIENT
  Age: 59 Year
  Sex: Female
  Weight: 89.8 kg

DRUGS (9)
  1. CRESTOR [Suspect]
     Indication: HYPERCHOLESTEROLAEMIA
     Route: 048
     Dates: start: 20100801, end: 20101123
  2. SOMA [Concomitant]
     Indication: GROIN PAIN
  3. LEVOTHYROXINE SODIUM [Concomitant]
     Indication: HYPOTHYROIDISM
  4. ULTRACET [Concomitant]
     Indication: GROIN PAIN
  5. VICODIN [Concomitant]
     Indication: GROIN PAIN
  6. DARVOCET [Concomitant]
     Indication: GROIN PAIN
  7. TOPROL-XL [Concomitant]
     Indication: HYPERTENSION
  8. GLIPIZIDE [Concomitant]
     Indication: DIABETES MELLITUS
  9. IBUPROFEN (ADVIL) [Concomitant]
     Indication: GROIN PAIN

REACTIONS (1)
  - GROIN PAIN [None]
